FAERS Safety Report 4636613-1 (Version None)
Quarter: 2005Q2

REPORT INFORMATION
  Report Type: 
  Country: None (occurrence: None)
  Receive Date: 20050328
  Receipt Date: 20041208
  Transmission Date: 20051028
  Serious: No
  Sender: FDA-Public Use
  Company Number: USA041285733

PATIENT
  Age: 16 Year
  Sex: Female

DRUGS (2)
  1. STRATTERA [Suspect]
  2. TRAZODONE [Concomitant]

REACTIONS (1)
  - PANIC ATTACK [None]
